FAERS Safety Report 7177785-7 (Version None)
Quarter: 2010Q4

REPORT INFORMATION
  Report Type: 
  Country: None (occurrence: None)
  Receive Date: 20101220
  Receipt Date: 20101207
  Transmission Date: 20110411
  Serious: Yes (Hospitalization)
  Sender: FDA-Public Use
  Company Number: JP-AMGEN-JPNCT2010009880

PATIENT

DRUGS (16)
  1. PANITUMUMAB [Suspect]
     Indication: COLORECTAL CANCER
     Dosage: 6 MG/KG, Q2WK
     Route: 041
     Dates: start: 20100618, end: 20101020
  2. FAMOTIDINE D [Concomitant]
     Dosage: UNK
     Route: 048
  3. DAI-KENTYU-TO [Concomitant]
     Dosage: UNK
     Route: 048
  4. PURSENNID [Concomitant]
     Dosage: UNK
     Route: 048
  5. MAGLAX [Concomitant]
     Dosage: UNK
     Route: 048
  6. GASMOTIN [Concomitant]
     Dosage: UNK
     Route: 048
  7. LANSOPRAZOLE OD [Concomitant]
     Dosage: UNK
     Route: 048
  8. LOXONIN [Concomitant]
     Dosage: UNK
     Route: 048
  9. CALONAL [Concomitant]
     Dosage: UNK
     Route: 048
  10. BUSCOPAN [Concomitant]
     Dosage: UNK
     Route: 042
  11. LACTEC [Concomitant]
     Dosage: UNK
     Route: 042
  12. FLURBIPROFEN [Concomitant]
     Dosage: UNK
     Route: 042
  13. ATARAX [Concomitant]
     Dosage: UNK
     Route: 042
  14. TPN ELECTROLYTES IN PLASTIC CONTAINER [Concomitant]
     Dosage: UNK
     Route: 042
  15. FULCALIQ 2 [Concomitant]
     Dosage: UNK
     Route: 042
  16. OXINORM [Concomitant]
     Dosage: UNK
     Route: 048

REACTIONS (2)
  - STOMATITIS [None]
  - SUBILEUS [None]
